FAERS Safety Report 20934458 (Version 1)
Quarter: 2022Q2

REPORT INFORMATION
  Report Type: Spontaneous
  Country: US (occurrence: US)
  Receive Date: 20220608
  Receipt Date: 20220608
  Transmission Date: 20220721
  Serious: No
  Sender: FDA-Public Use
  Company Number: US-009507513-2206USA001862

PATIENT

DRUGS (1)
  1. MOLNUPIRAVIR [Suspect]
     Active Substance: MOLNUPIRAVIR
     Indication: COVID-19 treatment
     Dosage: UNK

REACTIONS (6)
  - SARS-CoV-2 test positive [Unknown]
  - Pyrexia [Unknown]
  - Cough [Unknown]
  - Asthma [Unknown]
  - Feeling of despair [Unknown]
  - Frustration tolerance decreased [Unknown]
